FAERS Safety Report 14014552 (Version 1)
Quarter: 2017Q3

REPORT INFORMATION
  Report Type: Spontaneous
  Country: ES (occurrence: ES)
  Receive Date: 20170927
  Receipt Date: 20170927
  Transmission Date: 20171128
  Serious: Yes (Hospitalization)
  Sender: FDA-Public Use
  Company Number: ES-ACCORD-059199

PATIENT
  Age: 65 Year
  Sex: Female
  Weight: 82 kg

DRUGS (1)
  1. OXALIPLATIN ACCORD [Suspect]
     Active Substance: OXALIPLATIN
     Indication: PRODUCT USED FOR UNKNOWN INDICATION
     Dosage: STRENGTH: 5 MG/ML, CONCENTRATE FOR SOLUTION FOR PERFUSION
     Route: 042
     Dates: start: 20170703, end: 20170703

REACTIONS (2)
  - Hypertensive crisis [Recovered/Resolved]
  - Erythema [Unknown]

NARRATIVE: CASE EVENT DATE: 20170703
